FAERS Safety Report 9165551 (Version 1)
Quarter: 2013Q1

REPORT INFORMATION
  Report Type: Spontaneous
  Country: US (occurrence: US)
  Receive Date: 20130315
  Receipt Date: 20130315
  Transmission Date: 20140127
  Serious: No
  Sender: FDA-Public Use
  Company Number: US-BAYER-2013-032633

PATIENT
  Sex: 0

DRUGS (3)
  1. ALEVE [Suspect]
     Indication: MUSCULOSKELETAL DISCOMFORT
     Dosage: TAB
  2. ADVIL [IBUPROFEN] [Concomitant]
     Indication: MUSCULOSKELETAL DISCOMFORT
  3. CORTISONE [CORTISONE] [Concomitant]
     Indication: MUSCULOSKELETAL DISCOMFORT

REACTIONS (1)
  - Drug ineffective [None]
